FAERS Safety Report 16425668 (Version 1)
Quarter: 2019Q2

REPORT INFORMATION
  Report Type: Spontaneous
  Country: US (occurrence: US)
  Receive Date: 20190506
  Receipt Date: 20190506
  Transmission Date: 20190711
  Serious: No
  Sender: FDA-Public Use
  Company Number: None

PATIENT
  Age: 53 Year
  Sex: Female

DRUGS (1)
  1. DALFAMPRIDINE 10MG  ER TAB [Suspect]
     Active Substance: DALFAMPRIDINE
     Dates: start: 201904

REACTIONS (4)
  - Gait inability [None]
  - Infusion related reaction [None]
  - Feeling abnormal [None]
  - Ill-defined disorder [None]

NARRATIVE: CASE EVENT DATE: 20190506
